FAERS Safety Report 13886420 (Version 2)
Quarter: 2018Q3

REPORT INFORMATION
  Report Type: Spontaneous
  Country: US (occurrence: US)
  Receive Date: 20170821
  Receipt Date: 20180727
  Transmission Date: 20181010
  Serious: No
  Sender: FDA-Public Use
  Company Number: US-ALLERGAN-1730883US

PATIENT
  Sex: Male

DRUGS (12)
  1. LEVOTHROID [Concomitant]
     Active Substance: LEVOTHYROXINE SODIUM
     Indication: HYPOTHYROIDISM
     Route: 065
  2. CLOPIDOGREL [Concomitant]
     Active Substance: CLOPIDOGREL BISULFATE
     Indication: BLOOD DISORDER
     Route: 065
  3. ANDRODERM [Suspect]
     Active Substance: TESTOSTERONE
     Dosage: 8 MG, QD
     Route: 062
     Dates: start: 201707
  4. OMEPRAZOLE. [Concomitant]
     Active Substance: OMEPRAZOLE
     Indication: GASTROINTESTINAL DISORDER
     Route: 065
  5. ASPIRIN. [Concomitant]
     Active Substance: ASPIRIN
     Indication: PRODUCT USED FOR UNKNOWN INDICATION
     Route: 065
  6. VITAMIN B12 [Concomitant]
     Active Substance: CYANOCOBALAMIN
     Indication: PRODUCT USED FOR UNKNOWN INDICATION
     Route: 065
  7. ALLOPURINOL. [Concomitant]
     Active Substance: ALLOPURINOL
     Indication: GOUT
     Route: 065
  8. ATORVASTATIN [Concomitant]
     Active Substance: ATORVASTATIN
     Indication: BLOOD CHOLESTEROL INCREASED
     Route: 065
  9. ANDRODERM [Suspect]
     Active Substance: TESTOSTERONE
     Indication: HORMONE REPLACEMENT THERAPY
     Dosage: 8 MG, QD
     Route: 062
     Dates: end: 201706
  10. RANITIDINE. [Concomitant]
     Active Substance: RANITIDINE
     Indication: GASTROINTESTINAL DISORDER
     Route: 065
  11. TAMSULOSIN [Concomitant]
     Active Substance: TAMSULOSIN
     Indication: PRODUCT USED FOR UNKNOWN INDICATION
     Route: 065
  12. HYDROCORTISONE. [Concomitant]
     Active Substance: HYDROCORTISONE
     Indication: PRODUCT USED FOR UNKNOWN INDICATION
     Route: 065

REACTIONS (3)
  - Wrong technique in product usage process [Unknown]
  - Off label use [Unknown]
  - Drug ineffective [Unknown]
